FAERS Safety Report 15864416 (Version 12)
Quarter: 2023Q2

REPORT INFORMATION
  Report Type: Spontaneous
  Country: HR (occurrence: HR)
  Receive Date: 20190124
  Receipt Date: 20230602
  Transmission Date: 20230722
  Serious: Yes (Hospitalization, Other)
  Sender: FDA-Public Use
  Company Number: HR-NAPPMUNDI-USA-2011-0075747

PATIENT
  Age: 31 Year
  Sex: Female

DRUGS (58)
  1. OXYCODONE HYDROCHLORIDE [Interacting]
     Active Substance: OXYCODONE HYDROCHLORIDE
     Indication: Pain
     Dosage: 30 MILLIGRAM, DAILY, (MAR10 10MG PP)
     Route: 065
     Dates: start: 200904
  2. OXYCODONE HYDROCHLORIDE [Interacting]
     Active Substance: OXYCODONE HYDROCHLORIDE
     Dosage: 13 MG, UNK
     Route: 065
     Dates: start: 201003
  3. OXYCODONE HYDROCHLORIDE [Interacting]
     Active Substance: OXYCODONE HYDROCHLORIDE
     Dosage: 10 MG, 3X PER DAY
     Route: 065
     Dates: start: 201003
  4. OXYCODONE HYDROCHLORIDE [Interacting]
     Active Substance: OXYCODONE HYDROCHLORIDE
     Dosage: 10 MG EVERY 8 HOURS (TID)
     Route: 065
     Dates: start: 200904
  5. BUPRENORPHINE [Interacting]
     Active Substance: BUPRENORPHINE
     Indication: Pain
     Dosage: 70 MCG, Q72H
     Route: 065
     Dates: start: 200904
  6. BUPRENORPHINE [Interacting]
     Active Substance: BUPRENORPHINE
     Indication: Bradyphrenia
  7. LEVOTHYROXINE SODIUM [Interacting]
     Active Substance: LEVOTHYROXINE SODIUM
     Indication: Pain
     Dosage: 50 UG
     Route: 065
     Dates: start: 201003
  8. LEVOTHYROXINE SODIUM [Interacting]
     Active Substance: LEVOTHYROXINE SODIUM
     Indication: Quadriparesis
     Dosage: 50 UG
     Route: 065
     Dates: start: 200904
  9. LEVOTHYROXINE SODIUM [Interacting]
     Active Substance: LEVOTHYROXINE SODIUM
     Dosage: 50 UG
     Route: 065
     Dates: start: 200709
  10. LEVOTHYROXINE SODIUM [Interacting]
     Active Substance: LEVOTHYROXINE SODIUM
     Dosage: 50 UG, UNK
     Route: 065
     Dates: start: 200805
  11. LEVOTHYROXINE SODIUM [Interacting]
     Active Substance: LEVOTHYROXINE SODIUM
     Dosage: 50 UG
     Route: 065
     Dates: start: 200904
  12. LEVOTHYROXINE SODIUM [Interacting]
     Active Substance: LEVOTHYROXINE SODIUM
     Dosage: 50 UG, UNK
     Route: 065
     Dates: start: 200703
  13. LEVOTHYROXINE SODIUM [Interacting]
     Active Substance: LEVOTHYROXINE SODIUM
     Dosage: 75 UG
     Route: 065
     Dates: start: 200703
  14. BACLOFEN [Interacting]
     Active Substance: BACLOFEN
     Indication: Pain
     Dosage: 10 MG, 1/DAY
     Route: 065
     Dates: start: 200709
  15. BACLOFEN [Interacting]
     Active Substance: BACLOFEN
     Dosage: DOSE: 3X25 MG
     Route: 065
     Dates: start: 200805
  16. BACLOFEN [Interacting]
     Active Substance: BACLOFEN
     Dosage: 25 MG, TID
     Route: 065
     Dates: start: 200904
  17. BACLOFEN [Interacting]
     Active Substance: BACLOFEN
     Dosage: 25 MG, TID
     Route: 065
     Dates: start: 201003
  18. BACLOFEN [Interacting]
     Active Substance: BACLOFEN
     Dosage: 25 MILLIGRAM, DAILY (25 MG, QD )
     Route: 065
     Dates: start: 201003
  19. BACLOFEN [Interacting]
     Active Substance: BACLOFEN
     Dosage: 10 MILLIGRAM (10 MG, TID )
     Route: 065
     Dates: start: 200709
  20. BACLOFEN [Interacting]
     Active Substance: BACLOFEN
     Dosage: 25 MILLIGRAM (25 MG, TID )
     Route: 065
     Dates: start: 200805
  21. GABAPENTIN [Interacting]
     Active Substance: GABAPENTIN
     Indication: Mental disorder
     Dosage: DOSE: 3X300 MG, UNK
     Route: 065
     Dates: start: 200904
  22. GABAPENTIN [Interacting]
     Active Substance: GABAPENTIN
     Indication: Pain
     Dosage: 3X300 MG, UNK
     Route: 065
  23. CARBAMAZEPINE [Interacting]
     Active Substance: CARBAMAZEPINE
     Indication: Pain
     Dosage: DOSE: 3X200 MG
     Route: 065
     Dates: start: 200709
  24. CARBAMAZEPINE [Interacting]
     Active Substance: CARBAMAZEPINE
     Dosage: 200 MG, 1/DAY
     Route: 065
     Dates: start: 200709
  25. FEXOFENADINE HYDROCHLORIDE [Interacting]
     Active Substance: FEXOFENADINE HYDROCHLORIDE
     Indication: Headache
     Dosage: 180 MG, UNK
     Route: 065
     Dates: start: 201003
  26. FEXOFENADINE HYDROCHLORIDE [Interacting]
     Active Substance: FEXOFENADINE HYDROCHLORIDE
     Indication: Pain
  27. ACETAMINOPHEN\TRAMADOL [Interacting]
     Active Substance: ACETAMINOPHEN\TRAMADOL
     Indication: Pain
     Dosage: DOSE: 3X 2 (375/325MG)
     Route: 065
     Dates: start: 200805
  28. ACETAMINOPHEN\TRAMADOL [Interacting]
     Active Substance: ACETAMINOPHEN\TRAMADOL
     Dosage: 37.5 MG/325MG 2 TABLETS 3 TIMES PER DAY
     Route: 065
     Dates: start: 200904
  29. ACETAMINOPHEN\TRAMADOL [Interacting]
     Active Substance: ACETAMINOPHEN\TRAMADOL
     Dosage: 3X2TABS (TRAMADOL 37.5MG,PARACETAMOL 325MG
     Route: 065
     Dates: start: 200709
  30. ACETAMINOPHEN\TRAMADOL [Interacting]
     Active Substance: ACETAMINOPHEN\TRAMADOL
     Dosage: DOSE: 3X 2 (375/325MG)
     Route: 065
     Dates: start: 200805
  31. ACETAMINOPHEN\TRAMADOL [Interacting]
     Active Substance: ACETAMINOPHEN\TRAMADOL
     Dosage: 1DF:3 TIMES 2 TABLETS(TRAMADOL 37.5MG,PARACETAMOL 325MG)
     Route: 065
     Dates: start: 200709
  32. ACETAMINOPHEN\TRAMADOL [Interacting]
     Active Substance: ACETAMINOPHEN\TRAMADOL
     Dosage: PP
     Route: 065
     Dates: start: 201003
  33. CYANOCOBALAMIN\PYRIDOXINE\RIBOFLAVIN\THIAMINE [Interacting]
     Active Substance: CYANOCOBALAMIN\PYRIDOXINE\RIBOFLAVIN\THIAMINE
     Indication: Asthenia
     Dosage: 2X1 TABLET
     Route: 065
     Dates: start: 200805
  34. CYANOCOBALAMIN\PYRIDOXINE\RIBOFLAVIN\THIAMINE [Interacting]
     Active Substance: CYANOCOBALAMIN\PYRIDOXINE\RIBOFLAVIN\THIAMINE
     Indication: Pain
     Dosage: 2 DOSAGE FORM (2 X 1 TABLET  )
     Route: 065
     Dates: start: 200805
  35. SERTRALINE [Interacting]
     Active Substance: SERTRALINE HYDROCHLORIDE
     Indication: Pain
     Dosage: 50 MG, DAILY
     Route: 065
     Dates: start: 200805
  36. SERTRALINE [Interacting]
     Active Substance: SERTRALINE HYDROCHLORIDE
     Indication: Headache
     Dosage: DOSE: 50 MG 1X1
     Route: 065
     Dates: start: 200904
  37. SERTRALINE [Interacting]
     Active Substance: SERTRALINE HYDROCHLORIDE
     Dosage: 1DF:1 TABLET APR09 50MG
     Route: 065
     Dates: start: 200805
  38. FENTANYL [Interacting]
     Active Substance: FENTANYL
     Indication: Pain
     Dosage: 100 UG/72 H, UNK
     Route: 062
     Dates: start: 201003
  39. GINKGO [Interacting]
     Active Substance: GINKGO
     Indication: Rash
     Dosage: 120 MG, UNK
     Route: 065
     Dates: start: 201003
  40. GINKGO [Interacting]
     Active Substance: GINKGO
     Indication: Pain
  41. PIROXICAM [Interacting]
     Active Substance: PIROXICAM
     Indication: Pain
     Dosage: 20 MG
     Route: 065
     Dates: start: 200709
  42. PIROXICAM [Interacting]
     Active Substance: PIROXICAM
     Dosage: 3 X 2 (375/325 MG)
     Route: 065
     Dates: start: 200805
  43. PANTOPRAZOLE [Interacting]
     Active Substance: PANTOPRAZOLE
     Indication: Product used for unknown indication
     Dosage: 20 MG, UNK
     Route: 065
     Dates: start: 200904
  44. PREGABALIN [Interacting]
     Active Substance: PREGABALIN
     Indication: Pain
     Dosage: 300 MG BID (TWICE A DAY)
     Route: 065
     Dates: start: 201003
  45. DIAZEPAM [Interacting]
     Active Substance: DIAZEPAM
     Indication: Pain
     Dosage: DOSE: 2 MG, 2 MG, 5 MG
     Route: 065
     Dates: start: 201003
  46. DIAZEPAM [Interacting]
     Active Substance: DIAZEPAM
     Dosage: 5 UG, QD
     Route: 065
     Dates: start: 200709
  47. DIAZEPAM [Interacting]
     Active Substance: DIAZEPAM
     Dosage: 5 UG, QD
     Route: 065
     Dates: start: 200709
  48. DIAZEPAM [Interacting]
     Active Substance: DIAZEPAM
     Dosage: 1 DF, 1/DAY
     Route: 065
     Dates: start: 201003
  49. RANITIDINE [Interacting]
     Active Substance: RANITIDINE
     Indication: Product used for unknown indication
     Dosage: DOSE: 2X150 MG
     Route: 065
     Dates: start: 200709
  50. IBUPROFEN [Interacting]
     Active Substance: IBUPROFEN
     Indication: Pain
     Dosage: 400 MG
     Route: 065
     Dates: start: 200703
  51. ESOMEPRAZOLE [Interacting]
     Active Substance: ESOMEPRAZOLE
     Indication: Asthenia
     Dosage: 2X20 MG
     Route: 065
     Dates: start: 201003
  52. ALPRAZOLAM [Suspect]
     Active Substance: ALPRAZOLAM
     Indication: Pain
     Dosage: DOSE: 0.5 MG 3X1
     Route: 065
     Dates: start: 200805
  53. ALPRAZOLAM [Suspect]
     Active Substance: ALPRAZOLAM
     Indication: Persistent depressive disorder
  54. TRAMADOL [Concomitant]
     Active Substance: TRAMADOL
     Indication: Pain
     Dosage: 3 X 37.5 MG
     Route: 065
  55. TRAMADOL [Concomitant]
     Active Substance: TRAMADOL
     Dosage: 3X37.5 MG, UNK
     Route: 065
     Dates: start: 200805
  56. ALPRAZOLAM [Concomitant]
     Active Substance: ALPRAZOLAM
     Indication: Pain
     Dosage: UNK UKN, UNK
     Route: 065
     Dates: start: 200805
  57. ALPRAZOLAM [Concomitant]
     Active Substance: ALPRAZOLAM
     Indication: Persistent depressive disorder
  58. NEUROBION FORTE [Concomitant]
     Active Substance: CYANOCOBALAMIN\PYRIDOXINE HYDROCHLORIDE\THIAMINE DISULFIDE
     Indication: Asthenia
     Dosage: UNK UKN, UNK
     Route: 065
     Dates: start: 200805

REACTIONS (43)
  - Schizophrenia [Unknown]
  - Neurosis [Unknown]
  - Condition aggravated [Unknown]
  - Disturbance in attention [Unknown]
  - Conversion disorder [Unknown]
  - Cognitive disorder [Unknown]
  - Depression [Unknown]
  - Diplopia [Unknown]
  - Syncope [Unknown]
  - Loss of consciousness [Unknown]
  - Feeling abnormal [Unknown]
  - Confusional state [Unknown]
  - Erythema [Unknown]
  - Persistent depressive disorder [Unknown]
  - Euphoric mood [Unknown]
  - Quadriparesis [Unknown]
  - Musculoskeletal stiffness [Unknown]
  - Sensory disturbance [Unknown]
  - Oedema [Unknown]
  - Nausea [Unknown]
  - Gastrointestinal motility disorder [Unknown]
  - Constipation [Unknown]
  - Headache [Unknown]
  - Fatigue [Unknown]
  - Asthenia [Unknown]
  - Psychomotor skills impaired [Unknown]
  - Pain [Unknown]
  - Dizziness [Unknown]
  - Anxiety [Unknown]
  - Vomiting [Unknown]
  - Cognitive disorder [Unknown]
  - Sedation [Unknown]
  - Feeling abnormal [Unknown]
  - Drug interaction [Unknown]
  - Drug ineffective [Unknown]
  - Pruritus [Unknown]
  - Rash [Unknown]
  - Pain [Unknown]
  - Ataxia [Unknown]
  - Pain [Unknown]
  - Asthenia [Unknown]
  - Asthenia [Unknown]
  - Ill-defined disorder [Unknown]
